FAERS Safety Report 17516430 (Version 1)
Quarter: 2020Q1

REPORT INFORMATION
  Report Type: Spontaneous
  Country: US (occurrence: US)
  Receive Date: 20200309
  Receipt Date: 20200309
  Transmission Date: 20200409
  Serious: No
  Sender: FDA-Public Use
  Company Number: US-PFIZER INC-2020101949

PATIENT
  Age: 60 Year
  Sex: Female

DRUGS (2)
  1. PLAQUENIL [HYDROXYCHLOROQUINE PHOSPHATE] [Concomitant]
     Active Substance: HYDROXYCHLOROQUINE DIPHOSPHATE
     Dosage: UNK
  2. XELJANZ XR [Suspect]
     Active Substance: TOFACITINIB CITRATE
     Indication: RHEUMATOID ARTHRITIS
     Dosage: 11 MG, ALTERNATE DAY(XELJANZ 11 MG XR TAB EVERY OTHER DAY)
     Route: 048
     Dates: start: 201803

REACTIONS (3)
  - Vulvovaginal mycotic infection [Unknown]
  - Peripheral swelling [Recovered/Resolved]
  - Oral fungal infection [Unknown]
